FAERS Safety Report 4731647-0 (Version None)
Quarter: 2005Q3

REPORT INFORMATION
  Report Type: 
  Country: None (occurrence: None)
  Receive Date: 20050802
  Receipt Date: 20050719
  Transmission Date: 20060218
  Serious: Yes (Death)
  Sender: FDA-Public Use
  Company Number: JP-JNJFOC-20050704505

PATIENT
  Age: 44 Year
  Sex: Male

DRUGS (3)
  1. LEUSTATIN [Suspect]
  2. SULFAMETHOXAZOLE AND TRIMETHOPRIM [Concomitant]
  3. SULFAMETHOXAZOLE AND TRIMETHOPRIM [Concomitant]

REACTIONS (2)
  - MYOCARDITIS [None]
  - RHABDOMYOLYSIS [None]
